FAERS Safety Report 4628078-0 (Version None)
Quarter: 2005Q2

REPORT INFORMATION
  Report Type: 
  Country: None (occurrence: None)
  Receive Date: 20050401
  Receipt Date: 20050322
  Transmission Date: 20051028
  Serious: Yes (Congenital Anomaly)
  Sender: FDA-Public Use
  Company Number: 2005-DE-01770GD

PATIENT
  Sex: 0

DRUGS (5)
  1. LANSOPRAZOLE [Suspect]
     Dosage: IU
     Route: 015
  2. THEOPHYLLINE [Suspect]
     Dosage: IU
     Route: 015
  3. KETOTIFEN (KETOTIFEN) [Suspect]
     Dosage: IU
     Route: 015
  4. HALOPERIDOL [Suspect]
     Dosage: IU
     Route: 015
  5. HYDROXYZINE [Suspect]

REACTIONS (2)
  - DRUG EXPOSURE DURING PREGNANCY [None]
  - NOONAN SYNDROME [None]
